FAERS Safety Report 7032297-6 (Version None)
Quarter: 2010Q4

REPORT INFORMATION
  Report Type: 
  Country: None (occurrence: None)
  Receive Date: 20101007
  Receipt Date: 20100521
  Transmission Date: 20110411
  Serious: Yes (Life-Threatening, Hospitalization)
  Sender: FDA-Public Use
  Company Number: ES-BRISTOL-MYERS SQUIBB COMPANY-15119753

PATIENT
  Age: 59 Year
  Sex: Male
  Weight: 88 kg

DRUGS (3)
  1. CETUXIMAB [Suspect]
     Indication: GASTROOESOPHAGEAL CANCER
     Dosage: RECENT INF ON:20MAY2010
     Route: 042
     Dates: start: 20100520, end: 20100520
  2. CISPLATIN [Suspect]
     Indication: GASTROOESOPHAGEAL CANCER
     Dosage: ON DAY 1 OF CYCLE
     Route: 042
     Dates: start: 20100520, end: 20100520
  3. CAPECITABINE [Suspect]
     Indication: GASTROOESOPHAGEAL CANCER
     Dosage: ON DAY 1-15. CAPECITABINE TABS
     Route: 048
     Dates: start: 20100520, end: 20100520

REACTIONS (2)
  - ACUTE MYOCARDIAL INFARCTION [None]
  - PULMONARY EMBOLISM [None]
